FAERS Safety Report 19089503 (Version 1)
Quarter: 2021Q2

REPORT INFORMATION
  Report Type: Spontaneous
  Country: US (occurrence: US)
  Receive Date: 20210403
  Receipt Date: 20210403
  Transmission Date: 20210717
  Serious: Yes (Hospitalization, Other)
  Sender: FDA-Public Use
  Company Number: US-CIPLA LTD.-2021US02557

PATIENT

DRUGS (12)
  1. CARBOPLATIN. [Suspect]
     Active Substance: CARBOPLATIN
     Dosage: 262.3 MG, UNK, DAY?1 OF CYCLE?3
     Route: 042
  2. ETOPOSIDE. [Suspect]
     Active Substance: ETOPOSIDE
     Dosage: 72 MG, UNK, ON DAY?1 AND 2 OF CYCLE?5
     Route: 042
  3. CARBOPLATIN. [Suspect]
     Active Substance: CARBOPLATIN
     Indication: RETINOBLASTOMA
     Dosage: 256.7 MG, UNK, DAY?1 OF CYCLE?1
     Route: 042
  4. ETOPOSIDE. [Suspect]
     Active Substance: ETOPOSIDE
     Dosage: 72.5 MG, UNK, ON DAY?1 AND 2 OF CYCLE?4 AND 6
     Route: 042
  5. VINCRISTINE [Suspect]
     Active Substance: VINCRISTINE
     Indication: RETINOBLASTOMA
     Dosage: 0.7 MG, UNK, ON DAY?1 OF CYCLES 1?6
     Route: 042
  6. CARBOPLATIN. [Suspect]
     Active Substance: CARBOPLATIN
     Dosage: 241.8 MG, UNK, DAY?1 OF CYCLE?2
     Route: 042
  7. CARBOPLATIN. [Suspect]
     Active Substance: CARBOPLATIN
     Dosage: 267.8 MG, UNK, DAY?1 OF CYCLE?5
     Route: 042
  8. ETOPOSIDE. [Suspect]
     Active Substance: ETOPOSIDE
     Dosage: 65 MG, UNK, ON DAY?1 AND 2 OF CYCLE?2
     Route: 042
  9. ETOPOSIDE. [Suspect]
     Active Substance: ETOPOSIDE
     Dosage: 70.5 MG, UNK, ON DAY?1 AND 2 OF CYCLE?3
     Route: 042
  10. CARBOPLATIN. [Suspect]
     Active Substance: CARBOPLATIN
     Dosage: 269.7 MG, UNK, DAY?1 OF CYCLE?4
     Route: 042
  11. CARBOPLATIN. [Suspect]
     Active Substance: CARBOPLATIN
     Dosage: 269.7 MG, UNK, DAY?1 OF CYCLE?6
     Route: 042
  12. ETOPOSIDE. [Suspect]
     Active Substance: ETOPOSIDE
     Indication: RETINOBLASTOMA
     Dosage: 69 MG, UNK, ON DAY?1 AND 2 OF CYCLE?1
     Route: 042

REACTIONS (10)
  - Diarrhoea [Unknown]
  - Cytopenia [Unknown]
  - Toxicity to various agents [Unknown]
  - Vomiting [Unknown]
  - Dehiscence [Unknown]
  - Febrile neutropenia [Unknown]
  - Nausea [Unknown]
  - Anaemia [Unknown]
  - Neutropenia [Unknown]
  - Ophthalmic fluid drainage [Unknown]
